FAERS Safety Report 9535644 (Version 1)
Quarter: 2013Q3

REPORT INFORMATION
  Report Type: Spontaneous
  Country: US (occurrence: US)
  Receive Date: 20130919
  Receipt Date: 20130919
  Transmission Date: 20140515
  Serious: No
  Sender: FDA-Public Use
  Company Number: US-BIOGENIDEC-2013BI086010

PATIENT
  Age: 52 Year
  Sex: Female

DRUGS (2)
  1. AVONEX [Suspect]
     Indication: MULTIPLE SCLEROSIS
     Route: 030
     Dates: start: 20070405, end: 20070701
  2. AVONEX [Suspect]
     Indication: MULTIPLE SCLEROSIS
     Route: 030
     Dates: start: 20011208, end: 20030108

REACTIONS (5)
  - Intervertebral disc protrusion [Recovered/Resolved]
  - Sciatica [Unknown]
  - Memory impairment [Unknown]
  - Visual impairment [Not Recovered/Not Resolved]
  - Pain [Unknown]
